FAERS Safety Report 24834162 (Version 3)
Quarter: 2025Q2

REPORT INFORMATION
  Report Type: Spontaneous
  Country: US (occurrence: US)
  Receive Date: 20250113
  Receipt Date: 20250429
  Transmission Date: 20250716
  Serious: Yes (Hospitalization)
  Sender: ROCHE
  Company Number: US-ROCHE-10000176145

PATIENT
  Age: 37 Year
  Sex: Female

DRUGS (2)
  1. XOLAIR PFS [Suspect]
     Active Substance: OMALIZUMAB
     Indication: Idiopathic urticaria
     Dosage: STRENGTH 300MG/2ML
     Route: 058
     Dates: start: 202202
  2. XOLAIR PFS [Suspect]
     Active Substance: OMALIZUMAB
     Indication: Hidradenitis
     Dosage: STRENGTH 300MG/2ML
     Route: 058
     Dates: start: 202502

REACTIONS (2)
  - Off label use [Unknown]
  - Idiopathic urticaria [Unknown]
